APPROVED DRUG PRODUCT: CARDIZEM
Active Ingredient: DILTIAZEM HYDROCHLORIDE
Strength: 5MG/ML **Federal Register determination that product was not discontinued or withdrawn for safety or effectiveness reasons**
Dosage Form/Route: INJECTABLE;INJECTION
Application: N020027 | Product #001
Applicant: BIOVAIL LABORATORIES INTERNATIONAL SRL
Approved: Oct 24, 1991 | RLD: Yes | RS: No | Type: DISCN